FAERS Safety Report 22099334 (Version 2)
Quarter: 2023Q1

REPORT INFORMATION
  Report Type: Report from Study
  Country: ES (occurrence: ES)
  Receive Date: 20230315
  Receipt Date: 20230320
  Transmission Date: 20230418
  Serious: Yes (Death)
  Sender: FDA-Public Use
  Company Number: ES-PFIZER INC-PV202300046980

PATIENT
  Age: 69 Year
  Sex: Female
  Weight: 56.8 kg

DRUGS (7)
  1. GLASDEGIB [Suspect]
     Active Substance: GLASDEGIB
     Indication: Glioblastoma
     Dosage: 75 MG, 1X/DAY
     Route: 048
     Dates: start: 20210214
  2. TEMOZOLOMIDE [Suspect]
     Active Substance: TEMOZOLOMIDE
     Indication: Glioblastoma
     Dosage: 115 MG, 1X/DAY
     Route: 048
     Dates: start: 20201214, end: 20210125
  3. TEMOZOLOMIDE [Suspect]
     Active Substance: TEMOZOLOMIDE
     Dosage: 200 MG/M2, 5 DAYS PER CYCLE. ADYUVANCY
     Route: 048
     Dates: start: 20210222, end: 20210716
  4. ATORVASTATIN [Concomitant]
     Active Substance: ATORVASTATIN
     Indication: Dyslipidaemia
     Dosage: UNK
     Route: 048
     Dates: start: 2015, end: 20210910
  5. ACETAMINOPHEN [Concomitant]
     Active Substance: ACETAMINOPHEN
     Indication: Pain prophylaxis
     Dosage: UNK
     Route: 048
     Dates: start: 20201110, end: 20210910
  6. LEVETIRACETAM [Concomitant]
     Active Substance: LEVETIRACETAM
     Indication: Seizure
     Dosage: UNK
     Route: 048
     Dates: start: 20201110, end: 20210910
  7. OMEPRAZOLE [Concomitant]
     Active Substance: OMEPRAZOLE
     Indication: Gastritis
     Dosage: UNK
     Route: 048
     Dates: start: 20201110, end: 20210910

REACTIONS (1)
  - Death [Fatal]

NARRATIVE: CASE EVENT DATE: 20210910
